FAERS Safety Report 5282317-4 (Version None)
Quarter: 2007Q1

REPORT INFORMATION
  Report Type: 
  Country: None (occurrence: None)
  Receive Date: 20070331
  Receipt Date: 20070323
  Transmission Date: 20070707
  Serious: Yes (Hospitalization)
  Sender: FDA-Public Use
  Company Number: GB-PFIZER INC-2007024118

PATIENT
  Sex: Female

DRUGS (1)
  1. DOSTINEX [Suspect]
     Route: 048

REACTIONS (1)
  - ACUTE CORONARY SYNDROME [None]
